FAERS Safety Report 14301056 (Version 1)
Quarter: 2017Q4

REPORT INFORMATION
  Report Type: Spontaneous
  Country: JP (occurrence: JP)
  Receive Date: 20171219
  Receipt Date: 20171219
  Transmission Date: 20180321
  Serious: Yes (Other)
  Sender: FDA-Public Use
  Company Number: JP-PFIZER INC-2017533847

PATIENT
  Age: 45 Year
  Sex: Female

DRUGS (1)
  1. HALCION [Suspect]
     Active Substance: TRIAZOLAM
     Dosage: 3.75 MG, SINGLE
     Route: 048

REACTIONS (4)
  - Crime [Unknown]
  - Amnesia [Unknown]
  - Overdose [Unknown]
  - Anal incontinence [Unknown]
